FAERS Safety Report 11650888 (Version 2)
Quarter: 2015Q4

REPORT INFORMATION
  Report Type: Spontaneous
  Country: FR (occurrence: FR)
  Receive Date: 20151021
  Receipt Date: 20151022
  Transmission Date: 20160304
  Serious: Yes (Hospitalization)
  Sender: FDA-Public Use
  Company Number: FR-ASTRAZENECA-2015SF00781

PATIENT
  Age: 1569 Week
  Sex: Female

DRUGS (5)
  1. INEXIUM [Suspect]
     Active Substance: ESOMEPRAZOLE
     Route: 048
     Dates: start: 20150626, end: 20150628
  2. CONTRAMAL [Concomitant]
     Active Substance: TRAMADOL HYDROCHLORIDE
     Route: 048
     Dates: start: 20150626
  3. BIPROFENID [Suspect]
     Active Substance: KETOPROFEN
     Indication: HEADACHE
     Route: 048
     Dates: start: 20150626, end: 20150628
  4. PARACETAMOL [Concomitant]
     Active Substance: ACETAMINOPHEN
     Route: 048
     Dates: start: 20150626
  5. PREDNISOLONE. [Suspect]
     Active Substance: PREDNISOLONE
     Indication: RHEUMATOID ARTHRITIS
     Dosage: 60 MG AT MORNING FOR SIX DAYS, 40 MG AT MORNING FOR FOUR DAYS AND 20 MG AT MORNING FOR FOUR DAYS
     Route: 048
     Dates: start: 20150609, end: 20150625

REACTIONS (2)
  - Proctitis infectious [Recovered/Resolved]
  - Escherichia infection [Unknown]

NARRATIVE: CASE EVENT DATE: 20150628
